FAERS Safety Report 20362765 (Version 1)
Quarter: 2022Q1

REPORT INFORMATION
  Report Type: Report from Study
  Country: US (occurrence: US)
  Receive Date: 20220121
  Receipt Date: 20220121
  Transmission Date: 20220423
  Serious: No
  Sender: FDA-Public Use
  Company Number: US-ABBVIE-22K-163-4238047-00

PATIENT
  Age: 31 Year
  Sex: Female

DRUGS (1)
  1. ORILISSA [Suspect]
     Active Substance: ELAGOLIX SODIUM
     Indication: Endometriosis
     Route: 048
     Dates: start: 202106

REACTIONS (2)
  - Menstrual disorder [Not Recovered/Not Resolved]
  - Hepatitis B [Unknown]

NARRATIVE: CASE EVENT DATE: 20210801
